FAERS Safety Report 17734324 (Version 4)
Quarter: 2020Q3

REPORT INFORMATION
  Report Type: Report from Study
  Country: US (occurrence: US)
  Receive Date: 20200501
  Receipt Date: 20200709
  Transmission Date: 20201102
  Serious: No
  Sender: FDA-Public Use
  Company Number: NVSC2020US119077

PATIENT
  Sex: Male

DRUGS (2)
  1. COSENTYX [Suspect]
     Active Substance: SECUKINUMAB
     Indication: PSORIATIC ARTHROPATHY
     Dosage: 300 MG (300MG WEEKLY X 5 WEEKS THEN 300MG)
     Route: 058
     Dates: start: 20200315
  2. COSENTYX [Suspect]
     Active Substance: SECUKINUMAB
     Indication: PSORIASIS

REACTIONS (6)
  - Skin injury [Recovering/Resolving]
  - Oropharyngeal pain [Unknown]
  - Heart rate increased [Unknown]
  - Hypertension [Unknown]
  - Diarrhoea [Unknown]
  - Arthralgia [Unknown]
